FAERS Safety Report 16480784 (Version 2)
Quarter: 2019Q3

REPORT INFORMATION
  Report Type: Spontaneous
  Country: US (occurrence: US)
  Receive Date: 20190626
  Receipt Date: 20190701
  Transmission Date: 20191004
  Serious: No
  Sender: FDA-Public Use
  Company Number: PHEH2019US026973

PATIENT
  Age: 13 Year
  Sex: Female

DRUGS (1)
  1. CYCLOGYL [Suspect]
     Active Substance: CYCLOPENTOLATE HYDROCHLORIDE
     Indication: PRODUCT USED FOR UNKNOWN INDICATION
     Dosage: UNK
     Route: 047
     Dates: start: 20190617, end: 20190617

REACTIONS (6)
  - Psychotic disorder [Unknown]
  - Disorientation [Unknown]
  - Mydriasis [Unknown]
  - Limb discomfort [Unknown]
  - Nausea [Unknown]
  - Dizziness [Unknown]
